FAERS Safety Report 7649347-6 (Version None)
Quarter: 2011Q3

REPORT INFORMATION
  Report Type: 
  Country: None (occurrence: None)
  Receive Date: 20110802
  Receipt Date: 20110729
  Transmission Date: 20111222
  Serious: Yes (Death, Disabling)
  Sender: FDA-Public Use
  Company Number: PHHY2011JP62463

PATIENT
  Sex: Female
  Weight: 54 kg

DRUGS (6)
  1. SODIUM CHLORIDE [Concomitant]
     Dosage: 100 ML, UNK
  2. LASIX [Concomitant]
     Dosage: UNK
     Route: 042
  3. SOLDEM 3PG [Concomitant]
     Route: 042
  4. FAMOTIDINE [Concomitant]
     Route: 042
  5. CEFEPIME HYDROCHLORIDE [Suspect]
     Indication: PNEUMONIA
     Dosage: 0.5 G, BID
     Route: 042
     Dates: start: 20110629, end: 20110703
  6. NYROZIN [Concomitant]
     Route: 042

REACTIONS (5)
  - YELLOW SKIN [None]
  - JAUNDICE [None]
  - PYREXIA [None]
  - PNEUMONIA [None]
  - RALES [None]
